FAERS Safety Report 11510044 (Version 2)
Quarter: 2015Q4

REPORT INFORMATION
  Report Type: Spontaneous
  Country: US (occurrence: US)
  Receive Date: 20150915
  Receipt Date: 20151005
  Transmission Date: 20160304
  Serious: Yes (Death)
  Sender: FDA-Public Use
  Company Number: US-JNJFOC-20150823813

PATIENT
  Age: 82 Year
  Sex: Male

DRUGS (2)
  1. PEPCID AC MAXIMUM STRENGTH [Suspect]
     Active Substance: FAMOTIDINE
     Indication: DIARRHOEA
     Dosage: EVERY DAY (QD) FOR ABOUT A WEEK
     Route: 048
  2. PEPCID AC MAXIMUM STRENGTH [Suspect]
     Active Substance: FAMOTIDINE
     Route: 048

REACTIONS (3)
  - Product use issue [Unknown]
  - Death [Fatal]
  - Drug ineffective for unapproved indication [Unknown]
